FAERS Safety Report 9160903 (Version 1)
Quarter: 2013Q1

REPORT INFORMATION
  Report Type: Spontaneous
  Country: US (occurrence: None)
  Receive Date: 20130215
  Receipt Date: 20130215
  Transmission Date: 20140127
  Serious: Yes (Other)
  Sender: FDA-Public Use
  Company Number: ACO_33128_2012

PATIENT
  Age: 57 Year
  Sex: Female
  Weight: 64.4 kg

DRUGS (3)
  1. AMPYRA (DALFAMPRIDINE) TABLET, 10MG [Suspect]
     Indication: GAIT DISTURBANCE
     Route: 048
     Dates: start: 201109
  2. BACLOFEN (BACLOFEN) (BACLOFEN) [Concomitant]
  3. FLOMAX (TAMSULOSIN HYDROCHLORIDE) [Concomitant]

REACTIONS (4)
  - Urinary retention [None]
  - Gait disturbance [None]
  - Urinary tract infection [None]
  - Inappropriate schedule of drug administration [None]
